FAERS Safety Report 5679222-8 (Version None)
Quarter: 2008Q1

REPORT INFORMATION
  Report Type: 
  Country: None (occurrence: None)
  Receive Date: 20080321
  Receipt Date: 20080303
  Transmission Date: 20080703
  Serious: No
  Sender: FDA-Public Use
  Company Number: 000#5#2008-00054

PATIENT
  Age: 20 Year
  Sex: Female

DRUGS (5)
  1. NEUPRO [Suspect]
     Indication: FIBROMYALGIA
     Dosage: TRANSDERMAL
     Route: 062
     Dates: start: 20071130, end: 20080228
  2. ACETAMINOPHEN W/ PROPOXYPHENE HCL [Concomitant]
  3. PARACETMOL (PARACETAMOL) [Concomitant]
  4. FLUTICASONE PROPIONATE [Concomitant]
  5. TRAZODONE HCL [Concomitant]

REACTIONS (3)
  - DEPRESSED LEVEL OF CONSCIOUSNESS [None]
  - INSOMNIA [None]
  - SLEEP ATTACKS [None]
